FAERS Safety Report 5527071-3 (Version None)
Quarter: 2007Q4

REPORT INFORMATION
  Report Type: 
  Country: None (occurrence: None)
  Receive Date: 20071127
  Receipt Date: 20071113
  Transmission Date: 20080405
  Serious: Yes (Other)
  Sender: FDA-Public Use
  Company Number: GB-MERCK-0711USA04288

PATIENT
  Age: 48 Year
  Sex: Male

DRUGS (2)
  1. PRINIVIL [Suspect]
     Indication: HYPERTENSION
     Route: 048
     Dates: start: 20070318, end: 20070922
  2. BENDROFLUAZIDE TABLETS [Concomitant]
     Indication: HYPERTENSION
     Route: 048

REACTIONS (4)
  - HEADACHE [None]
  - HYPOKINESIA [None]
  - TEARFULNESS [None]
  - VISION BLURRED [None]
